FAERS Safety Report 5837563-5 (Version None)
Quarter: 2008Q3

REPORT INFORMATION
  Report Type: 
  Country: None (occurrence: None)
  Receive Date: 20080807
  Receipt Date: 20080729
  Transmission Date: 20090109
  Serious: Yes (Other)
  Sender: FDA-Public Use
  Company Number: ES-AMGEN-UK298273

PATIENT
  Age: 58 Year
  Sex: Male

DRUGS (6)
  1. NEULASTA [Suspect]
     Indication: CHEMOTHERAPY
     Dates: start: 20080704
  2. EPREX [Concomitant]
     Route: 065
  3. MITOXANTRONE [Concomitant]
  4. CYTARABINE [Concomitant]
  5. ETOPOSIDE [Concomitant]
  6. PREDNISONE TAB [Concomitant]

REACTIONS (2)
  - LEUKOCYTOSIS [None]
  - THROMBOCYTHAEMIA [None]
